FAERS Safety Report 14978334 (Version 1)
Quarter: 2018Q2

REPORT INFORMATION
  Report Type: Spontaneous
  Country: IN (occurrence: IN)
  Receive Date: 20180606
  Receipt Date: 20180606
  Transmission Date: 20180711
  Serious: Yes (Hospitalization)
  Sender: FDA-Public Use
  Company Number: PHHY2018IN012353

PATIENT
  Age: 50 Year
  Sex: Male

DRUGS (1)
  1. METHOTREXATE. [Suspect]
     Active Substance: METHOTREXATE
     Indication: PSORIASIS
     Dosage: 5 MG, BID (2 TABLETS)
     Route: 065

REACTIONS (7)
  - Mouth ulceration [Recovered/Resolved]
  - Medication error [Unknown]
  - Rash erythematous [Recovered/Resolved]
  - Oral pain [Recovered/Resolved]
  - Dermatitis bullous [Recovered/Resolved]
  - Rash vesicular [Recovered/Resolved]
  - Swelling face [Recovered/Resolved]
